FAERS Safety Report 14472527 (Version 1)
Quarter: 2018Q1

REPORT INFORMATION
  Report Type: Spontaneous
  Country: DE (occurrence: DE)
  Receive Date: 20180201
  Receipt Date: 20180201
  Transmission Date: 20180509
  Serious: Yes (Hospitalization, Other)
  Sender: FDA-Public Use
  Company Number: PHHY2018DE015344

PATIENT
  Age: 65 Year
  Sex: Female

DRUGS (3)
  1. ORTHOMOL IMMUN PRO [Concomitant]
     Indication: PRODUCT USED FOR UNKNOWN INDICATION
     Route: 065
  2. SINUPRET FORTE [Concomitant]
     Active Substance: HERBALS
     Indication: PRODUCT USED FOR UNKNOWN INDICATION
     Route: 065
  3. CLARITHROMYCIN. [Suspect]
     Active Substance: CLARITHROMYCIN
     Indication: INFLUENZA
     Dosage: UNK UNK, BID
     Route: 048
     Dates: start: 20170823, end: 20170825

REACTIONS (10)
  - Dehydration [Unknown]
  - Nausea [Unknown]
  - Tremor [Unknown]
  - Diarrhoea [Unknown]
  - Decreased appetite [Unknown]
  - Palpitations [Unknown]
  - Dizziness [Unknown]
  - Hyperhidrosis [Unknown]
  - Arrhythmia [Unknown]
  - Dysgeusia [Unknown]

NARRATIVE: CASE EVENT DATE: 20170823
